FAERS Safety Report 8235483-2 (Version None)
Quarter: 2012Q1

REPORT INFORMATION
  Report Type: 
  Country: None (occurrence: None)
  Receive Date: 20120326
  Receipt Date: 20120320
  Transmission Date: 20120608
  Serious: Yes (Other)
  Sender: FDA-Public Use
  Company Number: US-PFIZER INC-2011272884

PATIENT
  Sex: Female

DRUGS (3)
  1. CORDARONE [Suspect]
     Indication: ARRHYTHMIA
     Dosage: UNK
     Route: 048
     Dates: start: 19990701, end: 20020101
  2. CORDARONE [Suspect]
     Dosage: UNK
     Dates: start: 20060101
  3. CORDARONE [Suspect]
     Dosage: UNK
     Dates: start: 20090101

REACTIONS (7)
  - ERYTHEMA [None]
  - HYPERTHYROIDISM [None]
  - ALOPECIA [None]
  - PHOTOSENSITIVITY REACTION [None]
  - ECZEMA [None]
  - PARKINSONISM [None]
  - NEUROLOGICAL SYMPTOM [None]
